FAERS Safety Report 6596040-7 (Version None)
Quarter: 2010Q1

REPORT INFORMATION
  Report Type: 
  Country: None (occurrence: None)
  Receive Date: 20100223
  Receipt Date: 20100218
  Transmission Date: 20100710
  Serious: Yes (Death)
  Sender: FDA-Public Use
  Company Number: PHHY2010IT09903

PATIENT
  Age: 17 Year
  Sex: Male

DRUGS (13)
  1. CYCLOSPORINE [Suspect]
     Indication: STEM CELL TRANSPLANT
     Dosage: UNK
  2. CYCLOSPORINE [Suspect]
     Indication: PROPHYLAXIS AGAINST GRAFT VERSUS HOST DISEASE
  3. AZATHIOPRINE [Suspect]
     Indication: STEM CELL TRANSPLANT
     Dosage: 3 MG/KG DAILY
  4. ACYCLOVIR [Concomitant]
     Indication: ANTIVIRAL PROPHYLAXIS
     Dosage: 5 MG/KG, TID
  5. AMPHOTERICINE B, LIPOSOME [Concomitant]
     Indication: ANTIFUNGAL PROPHYLAXIS
     Dosage: 1 MG/KG DAILY
  6. HYDROXYUREA [Concomitant]
     Indication: STEM CELL TRANSPLANT
     Dosage: 60 MG/KG DAILY
  7. GRANULOCYTE COLONY STIMULATING FACTOR [Concomitant]
     Indication: STEM CELL TRANSPLANT
     Dosage: TWICE WEEKLY
  8. EPOGEN [Concomitant]
     Indication: STEM CELL TRANSPLANT
     Dosage: TWICE WEEKLY
  9. FLUDARABINE [Concomitant]
     Indication: STEM CELL TRANSPLANT
     Dosage: 30 MG/M2/D
  10. BUSULFAN [Concomitant]
     Indication: STEM CELL TRANSPLANT
     Dosage: 1 MG/KG, TID
     Route: 048
  11. CYCLOPHOSPHAMIDE [Concomitant]
     Dosage: 50 MG/KG DAILY
     Route: 042
  12. THIOTEPA [Concomitant]
     Indication: STEM CELL TRANSPLANT
     Dosage: 10 MG/KG, UNK
  13. ANTI-THYMOCYTE GLOBULIN NOS [Concomitant]
     Indication: STEM CELL TRANSPLANT

REACTIONS (2)
  - PNEUMONIA CYTOMEGALOVIRAL [None]
  - SEPSIS [None]
